FAERS Safety Report 16129766 (Version 1)
Quarter: 2019Q1

REPORT INFORMATION
  Report Type: Spontaneous
  Country: US (occurrence: US)
  Receive Date: 20190328
  Receipt Date: 20190328
  Transmission Date: 20190418
  Serious: No
  Sender: FDA-Public Use
  Company Number: US-AVEDRO-AVE-2019-0032-AE

PATIENT

DRUGS (2)
  1. PHOTREXA VISCOUS [Suspect]
     Active Substance: RIBOFLAVIN 5^-PHOSPHATE SODIUM
     Indication: PRODUCT USED FOR UNKNOWN INDICATION
     Route: 047
     Dates: end: 20190121
  2. KXL SYSTEM [Suspect]
     Active Substance: DEVICE
     Indication: PRODUCT USED FOR UNKNOWN INDICATION
     Route: 047
     Dates: start: 20190121, end: 20190121

REACTIONS (4)
  - Therapy cessation [Unknown]
  - Device use error [Unknown]
  - Device malfunction [Unknown]
  - No adverse event [Unknown]

NARRATIVE: CASE EVENT DATE: 20190121
